FAERS Safety Report 23230701 (Version 1)
Quarter: 2023Q4

REPORT INFORMATION
  Report Type: Spontaneous
  Country: US (occurrence: None)
  Receive Date: 20231125
  Receipt Date: 20231125
  Transmission Date: 20240110
  Serious: Yes (unspecified)
  Sender: FDA-Public Use
  Company Number: None

PATIENT
  Age: 76 Year
  Sex: Female

DRUGS (1)
  1. PROLIA [Suspect]
     Active Substance: DENOSUMAB
     Dosage: OTHER FREQUENCY : Q6M;?
     Dates: start: 20230110, end: 20231125

REACTIONS (3)
  - Tooth disorder [None]
  - Jaw disorder [None]
  - Therapy interrupted [None]

NARRATIVE: CASE EVENT DATE: 20230719
